FAERS Safety Report 17186384 (Version 2)
Quarter: 2020Q1

REPORT INFORMATION
  Report Type: Report from Study
  Country: None (occurrence: US)
  Receive Date: 20191220
  Receipt Date: 20200128
  Transmission Date: 20200409
  Serious: Yes (Other)
  Sender: FDA-Public Use
  Company Number: US-ABBVIE-19K-163-3197456-00

PATIENT
  Sex: Female

DRUGS (1)
  1. HUMIRA [Suspect]
     Active Substance: ADALIMUMAB
     Indication: RHEUMATOID ARTHRITIS
     Route: 058
     Dates: end: 20191125

REACTIONS (8)
  - Pain [Recovered/Resolved]
  - Drug ineffective [Unknown]
  - Gait inability [Recovering/Resolving]
  - Osteoarthritis [Unknown]
  - Swelling [Recovered/Resolved]
  - Pain in extremity [Unknown]
  - Bone cyst [Unknown]
  - Impaired work ability [Recovering/Resolving]

NARRATIVE: CASE EVENT DATE: 2017
